FAERS Safety Report 6943047-3 (Version None)
Quarter: 2010Q3

REPORT INFORMATION
  Report Type: 
  Country: None (occurrence: None)
  Receive Date: 20100826
  Receipt Date: 20100812
  Transmission Date: 20110219
  Serious: No
  Sender: FDA-Public Use
  Company Number: US-B.I. PHARMACEUTICALS,INC./RIDGEFIELD-2010-BP-09142BP

PATIENT
  Age: 73 Year
  Sex: Female

DRUGS (5)
  1. MICARDIS [Suspect]
     Indication: HYPERTENSION
     Dosage: 80 MG
     Route: 048
     Dates: start: 20100201
  2. ASPIRIN [Concomitant]
  3. FISH OIL [Concomitant]
  4. PRILOSEC GENERIC [Concomitant]
     Indication: GASTROOESOPHAGEAL REFLUX DISEASE
  5. HYDROCHLOROTHIAZIDE [Concomitant]

REACTIONS (2)
  - PRURITUS GENERALISED [None]
  - SKIN IRRITATION [None]
